FAERS Safety Report 6076522-7 (Version None)
Quarter: 2009Q1

REPORT INFORMATION
  Report Type: 
  Country: None (occurrence: None)
  Receive Date: 20090211
  Receipt Date: 20090130
  Transmission Date: 20090719
  Serious: Yes (Hospitalization)
  Sender: FDA-Public Use
  Company Number: 231120K09USA

PATIENT
  Age: 42 Year
  Sex: Female
  Weight: 52 kg

DRUGS (4)
  1. REBIF [Suspect]
     Indication: MULTIPLE SCLEROSIS
     Dosage: 44 MCG,3 IN 1 WEEKS,SUBCUTANEOUS
     Route: 058
     Dates: start: 20081114
  2. NORVASC [Concomitant]
  3. BACLOFEN [Concomitant]
  4. ZANAFLEX [Concomitant]

REACTIONS (6)
  - ANURIA [None]
  - BACK PAIN [None]
  - CONDITION AGGRAVATED [None]
  - CONSTIPATION [None]
  - MULTIPLE SCLEROSIS [None]
  - PYREXIA [None]
